FAERS Safety Report 16645928 (Version 2)
Quarter: 2020Q1

REPORT INFORMATION
  Report Type: Spontaneous
  Country: US (occurrence: US)
  Receive Date: 20190730
  Receipt Date: 20200211
  Transmission Date: 20200409
  Serious: No
  Sender: FDA-Public Use
  Company Number: US-JNJFOC-20190736695

PATIENT
  Sex: Female

DRUGS (1)
  1. CHILDRENS TYLENOL [Suspect]
     Active Substance: ACETAMINOPHEN
     Indication: PYREXIA
     Dosage: JUST UNDER 10 ML ONCE
     Route: 048

REACTIONS (1)
  - Hallucination, visual [Recovered/Resolved]
